FAERS Safety Report 18177998 (Version 2)
Quarter: 2020Q3

REPORT INFORMATION
  Report Type: Spontaneous
  Country: FR (occurrence: FR)
  Receive Date: 20200820
  Receipt Date: 20200826
  Transmission Date: 20201103
  Serious: Yes (Death)
  Sender: FDA-Public Use
  Company Number: FR-MYLANLABS-2020M1071875

PATIENT
  Age: 61 Year
  Sex: Male

DRUGS (2)
  1. VERAPAMIL [Suspect]
     Active Substance: VERAPAMIL HYDROCHLORIDE
     Indication: PRODUCT USED FOR UNKNOWN INDICATION
     Dosage: UNK
     Route: 065
  2. DIGIFAB [Suspect]
     Active Substance: OVINE DIGOXIN IMMUNE FAB
     Indication: PRODUCT USED FOR UNKNOWN INDICATION
     Dosage: UNK, 12 VIALS
     Route: 065

REACTIONS (2)
  - Toxicity to various agents [Unknown]
  - Cardiac failure [Fatal]
